FAERS Safety Report 12547165 (Version 2)
Quarter: 2016Q3

REPORT INFORMATION
  Report Type: Spontaneous
  Country: CH (occurrence: CH)
  Receive Date: 20160711
  Receipt Date: 20160808
  Transmission Date: 20161109
  Serious: Yes (Death, Hospitalization, Other)
  Sender: FDA-Public Use
  Company Number: CH-TEVA-673414ISR

PATIENT
  Age: 52 Year
  Sex: Female

DRUGS (5)
  1. CYTARABINE. [Suspect]
     Active Substance: CYTARABINE
     Indication: DIFFUSE LARGE B-CELL LYMPHOMA
     Route: 065
  2. METHOTREXATE. [Suspect]
     Active Substance: METHOTREXATE
     Indication: DIFFUSE LARGE B-CELL LYMPHOMA
     Dosage: UNSPECIFIED STRENGTH, HIGH DOSE
     Route: 065
  3. DEXAMETHASONE. [Suspect]
     Active Substance: DEXAMETHASONE
     Indication: DIFFUSE LARGE B-CELL LYMPHOMA
     Dosage: 16 MILLIGRAM DAILY; INITIAL DOSE, COULD BE TAPERED OFF
     Route: 065
  4. RITUXIMAB [Suspect]
     Active Substance: RITUXIMAB
     Indication: DIFFUSE LARGE B-CELL LYMPHOMA
     Route: 065
  5. VORICONAZOLE. [Suspect]
     Active Substance: VORICONAZOLE
     Indication: ANTIFUNGAL TREATMENT
     Route: 048

REACTIONS (5)
  - Respiratory failure [Fatal]
  - Neutropenia [Recovered/Resolved]
  - Bronchopulmonary aspergillosis [Fatal]
  - Pneumonia fungal [Fatal]
  - Sepsis [Unknown]
